FAERS Safety Report 20583628 (Version 1)
Quarter: 2022Q1

REPORT INFORMATION
  Report Type: Spontaneous
  Country: US (occurrence: US)
  Receive Date: 20220311
  Receipt Date: 20220311
  Transmission Date: 20220423
  Serious: No
  Sender: FDA-Public Use
  Company Number: US-SA-SAC20220304000668

PATIENT
  Sex: Female

DRUGS (1)
  1. DUPIXENT [Suspect]
     Active Substance: DUPILUMAB
     Indication: Dermatitis atopic
     Dosage: 300 MG, QOW
     Route: 058
     Dates: start: 20220203

REACTIONS (9)
  - Paraesthesia [Unknown]
  - Pruritus [Unknown]
  - Skin burning sensation [Unknown]
  - Diarrhoea [Unknown]
  - Scab [Unknown]
  - Hypoaesthesia [Unknown]
  - Vision blurred [Unknown]
  - Swelling of eyelid [Unknown]
  - Erythema of eyelid [Unknown]
